FAERS Safety Report 24635720 (Version 1)
Quarter: 2024Q4

REPORT INFORMATION
  Report Type: Spontaneous
  Country: US (occurrence: US)
  Receive Date: 20241119
  Receipt Date: 20241119
  Transmission Date: 20250115
  Serious: No
  Sender: CATALYST PHARMA
  Company Number: US-CATALYST PHARMACEUTICALS-US-CATA-24-00936

PATIENT
  Age: 10 Year
  Sex: Male
  Weight: 50.794 kg

DRUGS (11)
  1. AGAMREE [Suspect]
     Active Substance: VAMOROLONE
     Indication: Duchenne muscular dystrophy
     Dosage: 7.5 ML DAILY
     Route: 048
     Dates: start: 20240503
  2. ALBUTEROL [Concomitant]
     Active Substance: ALBUTEROL
     Indication: Seasonal allergy
     Dosage: ONE PUFF EVERY SIX HOURS
     Route: 055
  3. CLARITIN [Concomitant]
     Active Substance: LORATADINE
     Indication: Seasonal allergy
     Dosage: 5MG DAILY
     Route: 065
  4. D-VI-SOL [Concomitant]
     Indication: Hypovitaminosis
     Dosage: THREE DROPS DAILY
     Route: 065
  5. FAMOTIDINE [Concomitant]
     Active Substance: FAMOTIDINE
     Indication: Gastrointestinal disorder prophylaxis
     Dosage: 20MG DAILY
     Route: 065
  6. HYLAND^S COLD AND COUGH [Concomitant]
     Indication: Product used for unknown indication
     Dosage: ONE TABLESPOON AS NEEDED
     Route: 065
  7. LISINOPRIL [Concomitant]
     Active Substance: LISINOPRIL
     Indication: Cardiac disorder
     Dosage: 5 MG DAILY
     Route: 065
  8. VITAMINS [Concomitant]
     Active Substance: VITAMINS
     Indication: Hypovitaminosis
     Dosage: TWO GUMMIES DAILY
     Route: 065
  9. TUMS [Concomitant]
     Active Substance: CALCIUM CARBONATE
     Indication: Calcium deficiency
     Dosage: 500MG DAILY
     Route: 065
  10. CHILDRENS TYLENOL [Concomitant]
     Active Substance: ACETAMINOPHEN
     Indication: Pyrexia
     Dosage: 160MG PER 5ML AS NEEDED
     Route: 065
  11. ZARBEE^S NATURALS COUGH SYRUP DARK HONEY [Concomitant]
     Indication: Cough
     Dosage: AS NEEDED
     Route: 065

REACTIONS (3)
  - Nervousness [Recovered/Resolved]
  - Illness [Recovered/Resolved]
  - Vomiting [Recovered/Resolved]

NARRATIVE: CASE EVENT DATE: 20240801
